FAERS Safety Report 23925846 (Version 1)
Quarter: 2024Q2

REPORT INFORMATION
  Report Type: Spontaneous
  Country: US (occurrence: None)
  Receive Date: 20240530
  Receipt Date: 20240530
  Transmission Date: 20240715
  Serious: Yes (Hospitalization)
  Sender: FDA-Public Use
  Company Number: None

PATIENT
  Age: 61 Year
  Sex: Male

DRUGS (2)
  1. REPATHA [Suspect]
     Active Substance: EVOLOCUMAB
  2. BRILINTA [Suspect]
     Active Substance: TICAGRELOR

REACTIONS (5)
  - Nasopharyngitis [None]
  - Productive cough [None]
  - Blood test abnormal [None]
  - Gingival bleeding [None]
  - Therapy cessation [None]

NARRATIVE: CASE EVENT DATE: 20240528
